FAERS Safety Report 5162930-5 (Version None)
Quarter: 2006Q4

REPORT INFORMATION
  Report Type: 
  Country: None (occurrence: None)
  Receive Date: 20061201
  Receipt Date: 20061121
  Transmission Date: 20070319
  Serious: Yes (Other)
  Sender: FDA-Public Use
  Company Number: CA-SANOFI-SYNTHELABO-A01200610168

PATIENT
  Age: 72 Year
  Sex: Male

DRUGS (8)
  1. COUMADIN [Concomitant]
     Route: 048
     Dates: start: 20060815
  2. AVAPRO [Suspect]
     Indication: HYPERTENSION
     Dosage: FLUCTUATED DAILY DOSE
     Route: 048
  3. DEXAMETHASONE TAB [Concomitant]
     Indication: BURSITIS
     Route: 065
     Dates: start: 20060301, end: 20060101
  4. DEXAMETHASONE TAB [Concomitant]
     Route: 065
     Dates: start: 20060101
  5. CORDARONE [Suspect]
     Indication: ARRHYTHMIA
     Route: 048
     Dates: start: 19970101
  6. APO-ATENOLOL [Concomitant]
     Indication: HYPERTENSION
     Route: 048
  7. PLAVIX [Suspect]
     Indication: ANGIOPLASTY
     Route: 048
     Dates: start: 20021105, end: 20060822
  8. PLAVIX [Suspect]
     Indication: STENT PLACEMENT
     Route: 048
     Dates: start: 20021105, end: 20060822

REACTIONS (2)
  - ARRHYTHMIA [None]
  - BLOOD PRESSURE FLUCTUATION [None]
